FAERS Safety Report 26035414 (Version 1)
Quarter: 2025Q4

REPORT INFORMATION
  Report Type: Spontaneous
  Country: JP (occurrence: JP)
  Receive Date: 20251112
  Receipt Date: 20251112
  Transmission Date: 20260118
  Serious: Yes (Other)
  Sender: SANOFI AVENTIS
  Company Number: JP-SA-2025SA336660

PATIENT
  Age: 64 Year
  Sex: Male

DRUGS (4)
  1. OXALIPLATIN [Suspect]
     Active Substance: OXALIPLATIN
     Indication: Gastric cancer
     Dosage: UNK
     Route: 041
  2. TS-1 [Suspect]
     Active Substance: GIMERACIL\OTERACIL POTASSIUM\TEGAFUR
     Indication: Gastric cancer
     Dosage: UNK
     Route: 048
  3. LEUCOVORIN CALCIUM [Concomitant]
     Active Substance: LEUCOVORIN CALCIUM
     Indication: Gastric cancer
     Dosage: UNK
     Route: 048
  4. TEGAFUR\URACIL [Concomitant]
     Active Substance: TEGAFUR\URACIL
     Indication: Gastric cancer
     Dosage: UNK
     Route: 048

REACTIONS (4)
  - Gastric varices [Unknown]
  - Neutropenia [Unknown]
  - Portal hypertension [Unknown]
  - Liver disorder [Unknown]
